FAERS Safety Report 10067159 (Version 1)
Quarter: 2014Q2

REPORT INFORMATION
  Report Type: Spontaneous
  Country: US (occurrence: None)
  Receive Date: 20140407
  Receipt Date: 20140407
  Transmission Date: 20141212
  Serious: Yes (Hospitalization, Other)
  Sender: FDA-Public Use
  Company Number: UTC-046591

PATIENT
  Age: 74 Year
  Sex: Male

DRUGS (2)
  1. REMODULIN [Suspect]
     Indication: COR PULMONALE CHRONIC
     Dosage: 13.32 UG/KG (0.00925 UG/KG 1 IN 1 MIN
     Route: 058
     Dates: start: 20120726
  2. ADCIRCA (TADALAFIL) (UNKNOWN) [Concomitant]

REACTIONS (5)
  - Mental status changes [None]
  - Confusional state [None]
  - Activities of daily living impaired [None]
  - Device dislocation [None]
  - Fall [None]
